FAERS Safety Report 13153305 (Version 3)
Quarter: 2017Q2

REPORT INFORMATION
  Report Type: Report from Study
  Country: JP (occurrence: JP)
  Receive Date: 20170126
  Receipt Date: 20170502
  Transmission Date: 20170830
  Serious: Yes (Hospitalization, Other)
  Sender: FDA-Public Use
  Company Number: JP-ASTELLAS-2017JP000820

PATIENT
  Age: 33 Year
  Sex: Female
  Weight: 46 kg

DRUGS (2)
  1. TACROLIMUS. [Suspect]
     Active Substance: TACROLIMUS
     Indication: INFERTILITY FEMALE
     Route: 048
     Dates: start: 20150331, end: 20150417
  2. LUTORAL [Concomitant]
     Active Substance: CHLORMADINONE ACETATE
     Indication: INFERTILITY FEMALE
     Dosage: 1 TABLET, TWICE DAILY
     Route: 048
     Dates: start: 20150331, end: 20150414

REACTIONS (4)
  - Multiple pregnancy [Recovered/Resolved]
  - Off label use [Unknown]
  - Premature delivery [Unknown]
  - Maternal exposure during pregnancy [Unknown]

NARRATIVE: CASE EVENT DATE: 2015
